FAERS Safety Report 5902869-8 (Version None)
Quarter: 2008Q3

REPORT INFORMATION
  Report Type: 
  Country: None (occurrence: None)
  Receive Date: 20080926
  Receipt Date: 20080915
  Transmission Date: 20090109
  Serious: Yes (Hospitalization)
  Sender: FDA-Public Use
  Company Number: AZAAU200800307

PATIENT
  Age: 54 Year
  Sex: Female
  Weight: 43 kg

DRUGS (2)
  1. VIDAZA [Suspect]
     Indication: MYELODYSPLASTIC SYNDROME
     Dosage: 76 MG/M2,X7 DAY, SUBCUTANEOUS
     Route: 058
     Dates: start: 20080825, end: 20080831
  2. THALIDOMIDE [Suspect]
     Indication: MYELODYSPLASTIC SYNDROME
     Dosage: 50 MG, DAILY, ORAL
     Route: 048
     Dates: start: 20080825, end: 20080909

REACTIONS (5)
  - ACUTE PULMONARY OEDEMA [None]
  - DISEASE PROGRESSION [None]
  - DRUG INEFFECTIVE [None]
  - DYSPNOEA [None]
  - LEUKOCYTOSIS [None]
